FAERS Safety Report 25384014 (Version 1)
Quarter: 2025Q2

REPORT INFORMATION
  Report Type: Spontaneous
  Country: US (occurrence: US)
  Receive Date: 20250602
  Receipt Date: 20250602
  Transmission Date: 20250717
  Serious: No
  Sender: PURACAP PHARMACEUTICAL LLC
  Company Number: US-PURACAP-US-2025EPCSPO00549

PATIENT
  Age: 74 Year
  Sex: Female
  Weight: 120 kg

DRUGS (2)
  1. BENZONATATE [Suspect]
     Active Substance: BENZONATATE
     Indication: Bronchitis
     Route: 065
     Dates: start: 20250429, end: 20250501
  2. BENZONATATE [Suspect]
     Active Substance: BENZONATATE
     Indication: Respiratory tract infection

REACTIONS (4)
  - Cough [Not Recovered/Not Resolved]
  - Asthenia [Not Recovered/Not Resolved]
  - Fatigue [Not Recovered/Not Resolved]
  - Product use in unapproved indication [Unknown]

NARRATIVE: CASE EVENT DATE: 20250429
